FAERS Safety Report 10901835 (Version 1)
Quarter: 2015Q1

REPORT INFORMATION
  Report Type: Spontaneous
  Country: US (occurrence: None)
  Receive Date: 20150303
  Receipt Date: 20150303
  Transmission Date: 20150721
  Serious: No
  Sender: FDA-Public Use
  Company Number: None

PATIENT
  Age: 48 Year
  Sex: Male
  Weight: 85.73 kg

DRUGS (6)
  1. LIPITOR [Concomitant]
     Active Substance: ATORVASTATIN CALCIUM
  2. METOPROLOL TARTRATE. [Suspect]
     Active Substance: METOPROLOL TARTRATE
     Indication: ACUTE MYOCARDIAL INFARCTION
     Route: 048
     Dates: start: 20150228, end: 20150301
  3. COQ10 [Concomitant]
     Active Substance: UBIDECARENONE
  4. LISINOPORIL [Concomitant]
  5. ASPRIN [Concomitant]
     Active Substance: ASPIRIN
  6. MULIT-VITAMIN [Concomitant]

REACTIONS (6)
  - Dizziness [None]
  - Malaise [None]
  - Palpitations [None]
  - Product quality issue [None]
  - Hypotension [None]
  - Product substitution issue [None]

NARRATIVE: CASE EVENT DATE: 20150228
